FAERS Safety Report 22525914 (Version 1)
Quarter: 2023Q2

REPORT INFORMATION
  Report Type: Spontaneous
  Country: KR (occurrence: KR)
  Receive Date: 20230606
  Receipt Date: 20230606
  Transmission Date: 20230721
  Serious: Yes (Hospitalization)
  Sender: FDA-Public Use
  Company Number: KR-ORGANON-O2306KOR000102

PATIENT
  Age: 76 Year
  Sex: Female
  Weight: 59.8 kg

DRUGS (10)
  1. COZAAR [Suspect]
     Active Substance: LOSARTAN POTASSIUM
     Dosage: UNK
     Route: 048
     Dates: start: 20190805
  2. ACETYLCARNITINE HYDROCHLORIDE, L- [Suspect]
     Active Substance: ACETYLCARNITINE HYDROCHLORIDE
     Indication: Cognitive disorder
     Dosage: 1 FORMULATION Q8H(REPORTED AS 0.33 DAY)
     Route: 048
     Dates: start: 20200507, end: 20201022
  3. BISOPROLOL FUMARATE [Concomitant]
     Active Substance: BISOPROLOL FUMARATE
     Dosage: UNK
     Route: 048
     Dates: start: 20190805
  4. CLOPIDOGREL BISULFATE [Concomitant]
     Active Substance: CLOPIDOGREL BISULFATE
     Dosage: UNK
     Dates: start: 20190805
  5. NICORANDIL [Concomitant]
     Active Substance: NICORANDIL
     Dosage: UNK
     Route: 048
     Dates: start: 20190805
  6. AMLODIPINE BESILATE;ATORVASTATIN CALCIUM [Concomitant]
     Dosage: UNK
     Route: 048
     Dates: start: 20200220
  7. NITROGLYCERIN [Concomitant]
     Active Substance: NITROGLYCERIN
     Dosage: UNK
     Route: 048
     Dates: start: 20200521
  8. PREGABALIN [Concomitant]
     Active Substance: PREGABALIN
     Dosage: UNK
     Route: 048
     Dates: start: 20200812, end: 20200911
  9. PIRENOXINE [Concomitant]
     Active Substance: PIRENOXINE
     Indication: Cataract
     Dosage: UNK
     Route: 047
     Dates: start: 20200907
  10. BROMFENAC SODIUM HYDRATE [Concomitant]
     Indication: Cataract
     Dosage: UNK
     Route: 047
     Dates: start: 20200909

REACTIONS (1)
  - Upper limb fracture [Recovered/Resolved]

NARRATIVE: CASE EVENT DATE: 20200917
